FAERS Safety Report 6074706-5 (Version None)
Quarter: 2009Q1

REPORT INFORMATION
  Report Type: 
  Country: None (occurrence: None)
  Receive Date: 20090210
  Receipt Date: 20090210
  Transmission Date: 20090719
  Serious: Yes (Other)
  Sender: FDA-Public Use
  Company Number: None

PATIENT
  Sex: Male
  Weight: 99.7913 kg

DRUGS (4)
  1. DEPAKOTE ER [Suspect]
     Indication: EPILEPSY
     Dosage: 1500 MG 1 PO
     Dates: start: 19940902, end: 20081010
  2. FOCALIN XR [Concomitant]
  3. CRESTOR [Concomitant]
  4. CARNITINE TABLETS [Concomitant]

REACTIONS (1)
  - DRUG LEVEL DECREASED [None]
